FAERS Safety Report 17375342 (Version 1)
Quarter: 2020Q1

REPORT INFORMATION
  Report Type: Spontaneous
  Country: US (occurrence: US)
  Receive Date: 20200205
  Receipt Date: 20200205
  Transmission Date: 20200409
  Serious: Yes (Other)
  Sender: FDA-Public Use
  Company Number: US-PFIZER INC-2020043922

PATIENT
  Age: 78 Year
  Sex: Female
  Weight: 98.88 kg

DRUGS (2)
  1. CELEBREX [Suspect]
     Active Substance: CELECOXIB
     Indication: RHEUMATOID ARTHRITIS
  2. CELEBREX [Suspect]
     Active Substance: CELECOXIB
     Indication: ARTHRITIS
     Dosage: 200 MG, 2X/DAY
     Dates: start: 201910, end: 201911

REACTIONS (4)
  - Peripheral swelling [Unknown]
  - Skin discolouration [Unknown]
  - Pain of skin [Unknown]
  - Bone disorder [Unknown]
